FAERS Safety Report 5196253-5 (Version None)
Quarter: 2007Q1

REPORT INFORMATION
  Report Type: 
  Country: None (occurrence: None)
  Receive Date: 20070102
  Receipt Date: 20061220
  Transmission Date: 20070707
  Serious: Yes (Death, Hospitalization)
  Sender: FDA-Public Use
  Company Number: US-PFIZER INC-2006143631

PATIENT
  Sex: Male
  Weight: 60 kg

DRUGS (1)
  1. SUTENT [Suspect]
     Indication: METASTATIC RENAL CELL CARCINOMA
     Route: 048
     Dates: start: 20051230, end: 20061119

REACTIONS (35)
  - ANAEMIA [None]
  - ASCITES [None]
  - ATELECTASIS [None]
  - BLOOD CREATININE INCREASED [None]
  - BLOOD POTASSIUM INCREASED [None]
  - BLOOD SODIUM DECREASED [None]
  - CEREBROVASCULAR ACCIDENT [None]
  - CLOSTRIDIUM DIFFICILE COLITIS [None]
  - COAGULOPATHY [None]
  - EMBOLISM [None]
  - ENCEPHALOPATHY [None]
  - FAILURE TO THRIVE [None]
  - FATIGUE [None]
  - HAEMATOCRIT DECREASED [None]
  - HAEMOGLOBIN DECREASED [None]
  - HAEMORRHAGIC STROKE [None]
  - ISCHAEMIA [None]
  - LYMPHADENOPATHY [None]
  - MALNUTRITION [None]
  - MENTAL STATUS CHANGES [None]
  - METABOLIC ENCEPHALOPATHY [None]
  - METASTASES TO LIVER [None]
  - NAUSEA [None]
  - PLATELET COUNT DECREASED [None]
  - PLEURAL EFFUSION [None]
  - PNEUMOBILIA [None]
  - PORTAL VEIN THROMBOSIS [None]
  - RENAL CYST [None]
  - RENAL FAILURE [None]
  - RENAL FAILURE ACUTE [None]
  - REVERSIBLE POSTERIOR LEUKOENCEPHALOPATHY SYNDROME [None]
  - THROMBOCYTOPENIA [None]
  - VASCULITIS [None]
  - VENOUS THROMBOSIS [None]
  - VOMITING [None]
